FAERS Safety Report 20992865 (Version 2)
Quarter: 2023Q1

REPORT INFORMATION
  Report Type: Report from Study
  Country: CO (occurrence: CO)
  Receive Date: 20220622
  Receipt Date: 20230323
  Transmission Date: 20230418
  Serious: Yes (Hospitalization, Other)
  Sender: FDA-Public Use
  Company Number: CO-ASTELLAS PHARMA GLOBAL DEVELOPMENT, INC.-2022US002753

PATIENT
  Age: 48 Year
  Sex: Male
  Weight: 108.4 kg

DRUGS (3)
  1. TACROLIMUS [Suspect]
     Active Substance: TACROLIMUS
     Indication: Renal transplant
     Dosage: 9 MG, ONCE DAILY (1 CAPSULE OF 5 MG AND 4 CAPSULES OF 1 MG)
     Route: 048
     Dates: start: 20211021
  2. TACROLIMUS [Suspect]
     Active Substance: TACROLIMUS
     Route: 048
  3. INSULIN NOS [Concomitant]
     Active Substance: INSULIN NOS
     Indication: Product used for unknown indication
     Dosage: UNK UNK, UNKNOWN FREQ.
     Route: 065

REACTIONS (4)
  - Nephrolithiasis [Recovering/Resolving]
  - Urinary tract obstruction [Unknown]
  - COVID-19 [Recovered/Resolved]
  - Calculus urinary [Recovering/Resolving]

NARRATIVE: CASE EVENT DATE: 20220113
